FAERS Safety Report 6132300-1 (Version None)
Quarter: 2009Q1

REPORT INFORMATION
  Report Type: 
  Country: None (occurrence: None)
  Receive Date: 20090325
  Receipt Date: 20090310
  Transmission Date: 20090719
  Serious: Yes (Death, Other)
  Sender: FDA-Public Use
  Company Number: DE-PFIZER INC-2009180600

PATIENT

DRUGS (2)
  1. CELECOXIB [Suspect]
     Dosage: 200 MG, 2X/DAY
     Route: 048
  2. DACARBAZINE [Suspect]
     Dosage: UNK
     Dates: start: 20061101, end: 20070101

REACTIONS (4)
  - ABDOMINAL NEOPLASM [None]
  - HEPATIC RUPTURE [None]
  - ILEUS [None]
  - ROAD TRAFFIC ACCIDENT [None]
